FAERS Safety Report 16118584 (Version 2)
Quarter: 2019Q2

REPORT INFORMATION
  Report Type: Spontaneous
  Country: US (occurrence: US)
  Receive Date: 20190326
  Receipt Date: 20190520
  Transmission Date: 20190711
  Serious: Yes (Other)
  Sender: FDA-Public Use
  Company Number: PHEH2019US012279

PATIENT
  Age: 65 Year
  Sex: Female

DRUGS (1)
  1. LATANOPROST. [Suspect]
     Active Substance: LATANOPROST
     Indication: GLAUCOMA
     Dosage: 1 GTT, QD
     Route: 061
     Dates: start: 20190307

REACTIONS (5)
  - Choking sensation [Unknown]
  - Cough [Unknown]
  - Respiratory tract congestion [Unknown]
  - Upper respiratory tract infection [Unknown]
  - Hordeolum [Unknown]

NARRATIVE: CASE EVENT DATE: 20190418
